FAERS Safety Report 10307340 (Version 1)
Quarter: 2014Q3

REPORT INFORMATION
  Report Type: Spontaneous
  Country: CA (occurrence: CA)
  Receive Date: 20140716
  Receipt Date: 20140716
  Transmission Date: 20150326
  Serious: Yes (Hospitalization, Other)
  Sender: FDA-Public Use
  Company Number: CA-AMGEN-CANSP2014053029

PATIENT
  Age: 46 Year
  Sex: Female

DRUGS (1)
  1. ENBREL [Suspect]
     Active Substance: ETANERCEPT
     Indication: SCLERODERMA
     Dosage: 50 MG, QWK
     Route: 065
     Dates: start: 20120905

REACTIONS (9)
  - Inflammation [Not Recovered/Not Resolved]
  - Skin disorder [Unknown]
  - Staphylococcal infection [Unknown]
  - Immunodeficiency [Unknown]
  - Hand deformity [Not Recovered/Not Resolved]
  - Musculoskeletal disorder [Not Recovered/Not Resolved]
  - Muscular weakness [Not Recovered/Not Resolved]
  - Osteomyelitis [Unknown]
  - Pain in extremity [Not Recovered/Not Resolved]
